FAERS Safety Report 10717451 (Version 7)
Quarter: 2015Q4

REPORT INFORMATION
  Report Type: Report from Study
  Country: JP (occurrence: JP)
  Receive Date: 20150116
  Receipt Date: 20151102
  Transmission Date: 20160304
  Serious: Yes (Death, Life-Threatening, Hospitalization)
  Sender: FDA-Public Use
  Company Number: JP-ABBVIE-15P-087-1330978-00

PATIENT
  Age: 67 Year
  Sex: Male
  Weight: 53 kg

DRUGS (25)
  1. HUMIRA [Suspect]
     Active Substance: ADALIMUMAB
     Indication: BEHCET^S SYNDROME
     Route: 058
     Dates: start: 20140722, end: 20140722
  2. PREDONINE [Concomitant]
     Active Substance: PREDNISOLONE\PREDNISOLONE ACETATE\PREDNISOLONE SODIUM SUCCINATE
     Dates: start: 20140826, end: 20140901
  3. PREDONINE [Concomitant]
     Active Substance: PREDNISOLONE\PREDNISOLONE ACETATE\PREDNISOLONE SODIUM SUCCINATE
     Dates: start: 20140902, end: 20140915
  4. PREDNISOLONE SODIUM SUCCINATE [Concomitant]
     Active Substance: PREDNISOLONE SODIUM SUCCINATE
     Dates: start: 20140919, end: 20140929
  5. PREDNISOLONE SODIUM SUCCINATE [Concomitant]
     Active Substance: PREDNISOLONE SODIUM SUCCINATE
     Dates: start: 20140805, end: 20140811
  6. PREDNISOLONE SODIUM SUCCINATE [Concomitant]
     Active Substance: PREDNISOLONE SODIUM SUCCINATE
     Dates: start: 20140812, end: 20140820
  7. PREDNISOLONE SODIUM SUCCINATE [Concomitant]
     Active Substance: PREDNISOLONE SODIUM SUCCINATE
     Indication: BEHCET^S SYNDROME
     Route: 050
     Dates: start: 20140911, end: 20140912
  8. PREDNISOLONE SODIUM SUCCINATE [Concomitant]
     Active Substance: PREDNISOLONE SODIUM SUCCINATE
     Dates: start: 20140910, end: 20140915
  9. PREDONINE [Concomitant]
     Active Substance: PREDNISOLONE\PREDNISOLONE ACETATE\PREDNISOLONE SODIUM SUCCINATE
     Indication: BEHCET^S SYNDROME
     Route: 048
     Dates: start: 20140821, end: 20140825
  10. SODIUM ALGINATE [Concomitant]
     Active Substance: SODIUM ALGINATE
     Indication: BEHCET^S SYNDROME
     Dosage: Q.S.
     Route: 061
     Dates: start: 20140722, end: 20141017
  11. FENTANYL. [Concomitant]
     Active Substance: FENTANYL
     Indication: BEHCET^S SYNDROME
     Route: 062
     Dates: start: 20140722, end: 20140725
  12. PREDNISOLONE SODIUM SUCCINATE [Concomitant]
     Active Substance: PREDNISOLONE SODIUM SUCCINATE
     Dates: start: 20140801, end: 20140804
  13. PREDNISOLONE SODIUM SUCCINATE [Concomitant]
     Active Substance: PREDNISOLONE SODIUM SUCCINATE
     Dates: start: 20140919, end: 20140929
  14. HUMIRA [Suspect]
     Active Substance: ADALIMUMAB
     Route: 065
     Dates: start: 20140805, end: 20140805
  15. HUMIRA [Suspect]
     Active Substance: ADALIMUMAB
     Route: 065
     Dates: start: 20140916, end: 20140930
  16. PREDNISOLONE. [Concomitant]
     Active Substance: PREDNISOLONE
     Indication: BEHCET^S SYNDROME
     Route: 048
     Dates: start: 20140902, end: 20140908
  17. PREDNISOLONE. [Concomitant]
     Active Substance: PREDNISOLONE
     Dates: start: 20140916, end: 20140917
  18. PREDNISOLONE SODIUM SUCCINATE [Concomitant]
     Active Substance: PREDNISOLONE SODIUM SUCCINATE
     Dates: start: 20140913, end: 20140919
  19. PREDNISOLONE SODIUM SUCCINATE [Concomitant]
     Active Substance: PREDNISOLONE SODIUM SUCCINATE
     Dates: start: 20140916, end: 20140922
  20. DEXAMETHASONE. [Concomitant]
     Active Substance: DEXAMETHASONE
     Indication: BEHCET^S SYNDROME
     Dosage: Q.S.
     Route: 061
     Dates: start: 20140722, end: 20141017
  21. HUMIRA [Suspect]
     Active Substance: ADALIMUMAB
     Route: 065
     Dates: start: 20140819, end: 20140902
  22. BETAMETHASONE SODIUM PHOSPHATE [Concomitant]
     Active Substance: BETAMETHASONE SODIUM PHOSPHATE
     Indication: BEHCET^S SYNDROME
     Route: 050
     Dates: start: 20141001, end: 20141017
  23. BETAMETHASONE. [Concomitant]
     Active Substance: BETAMETHASONE
     Indication: BEHCET^S SYNDROME
     Dates: start: 20141001
  24. PREDONINE [Concomitant]
     Active Substance: PREDNISOLONE\PREDNISOLONE ACETATE\PREDNISOLONE SODIUM SUCCINATE
     Dates: start: 20140916, end: 20140917
  25. PREDNISOLONE SODIUM SUCCINATE [Concomitant]
     Active Substance: PREDNISOLONE SODIUM SUCCINATE
     Indication: BEHCET^S SYNDROME
     Route: 050
     Dates: start: 20140722, end: 20141130

REACTIONS (7)
  - Large intestine perforation [Fatal]
  - Intestinal ulcer [Fatal]
  - Oesophageal ulcer [Fatal]
  - Sepsis [Recovering/Resolving]
  - Pneumonia [Fatal]
  - Pneumonia [Recovering/Resolving]
  - Colonic abscess [Fatal]

NARRATIVE: CASE EVENT DATE: 20140808
